FAERS Safety Report 7004217-1 (Version None)
Quarter: 2010Q3

REPORT INFORMATION
  Report Type: 
  Country: None (occurrence: None)
  Receive Date: 20100920
  Receipt Date: 20100226
  Transmission Date: 20110219
  Serious: No
  Sender: FDA-Public Use
  Company Number: US-WYE-H13832110

PATIENT

DRUGS (1)
  1. PRISTIQ [Suspect]
     Dosage: ^WEANING OFF THE MEDICATION^

REACTIONS (1)
  - DRUG WITHDRAWAL SYNDROME [None]
